FAERS Safety Report 14379309 (Version 1)
Quarter: 2018Q1

REPORT INFORMATION
  Report Type: Spontaneous
  Country: US (occurrence: US)
  Receive Date: 20180112
  Receipt Date: 20180112
  Transmission Date: 20180509
  Serious: Yes (Death, Hospitalization)
  Sender: FDA-Public Use
  Company Number: US-CIPLA LTD.-2018US00099

PATIENT

DRUGS (11)
  1. LEFLUNOMIDE. [Suspect]
     Active Substance: LEFLUNOMIDE
     Indication: RHEUMATOID ARTHRITIS
     Dosage: 20 MG/DAY
     Route: 065
  2. METHYLPREDNISOLONE. [Suspect]
     Active Substance: METHYLPREDNISOLONE
     Indication: RHEUMATOID ARTHRITIS
     Dosage: 16 MG/DAY
     Route: 065
  3. RIFAMPIN. [Suspect]
     Active Substance: RIFAMPIN
     Indication: DISSEMINATED TUBERCULOSIS
     Dosage: 600 MG, EVERY 24 H
     Route: 042
  4. ADALIMUMAB [Suspect]
     Active Substance: ADALIMUMAB
     Indication: RHEUMATOID ARTHRITIS
     Dosage: 40 M/WEEK
     Route: 065
  5. AMIKACIN [Suspect]
     Active Substance: AMIKACIN
     Indication: DISSEMINATED TUBERCULOSIS
     Dosage: 750 MG EVERY 48 H
     Route: 042
  6. LEVOFLOXACIN. [Suspect]
     Active Substance: LEVOFLOXACIN
     Indication: DISSEMINATED TUBERCULOSIS
     Dosage: 500 MG, AFTER EACH HAEMODIALYSIS
     Route: 048
  7. ISONIAZID. [Suspect]
     Active Substance: ISONIAZID
     Indication: DISSEMINATED TUBERCULOSIS
     Dosage: UNK
     Route: 065
  8. RIFABUTIN. [Suspect]
     Active Substance: RIFABUTIN
     Indication: DISSEMINATED TUBERCULOSIS
     Dosage: UNK
     Route: 065
  9. ETHAMBUTOL [Suspect]
     Active Substance: ETHAMBUTOL HYDROCHLORIDE
     Indication: DISSEMINATED TUBERCULOSIS
     Dosage: 1200 MG, AFTER EACH HAEMODIALYSIS
     Route: 048
  10. RIFAMPIN. [Suspect]
     Active Substance: RIFAMPIN
     Dosage: 600 MG, EVERY 24 H DURING CONTINUOUS VENOVENOUS HAEMOFILTRATION
     Route: 042
  11. PYRAZINAMIDE. [Suspect]
     Active Substance: PYRAZINAMIDE
     Indication: DISSEMINATED TUBERCULOSIS
     Dosage: 1500 MG AFTER EACH HAEMODIALYSIS
     Route: 048

REACTIONS (13)
  - Septic shock [Fatal]
  - Cytomegalovirus colitis [Unknown]
  - Burkholderia cepacia complex infection [Fatal]
  - Gastric perforation [Unknown]
  - Drug-induced liver injury [Unknown]
  - Mental status changes [Unknown]
  - Pneumonia [Unknown]
  - Bacteraemia [Unknown]
  - Fungaemia [Unknown]
  - Disseminated tuberculosis [Unknown]
  - Condition aggravated [Unknown]
  - Acute kidney injury [Unknown]
  - Electrocardiogram QT prolonged [Unknown]
